FAERS Safety Report 9268808 (Version 1)
Quarter: 2013Q2

REPORT INFORMATION
  Report Type: Spontaneous
  Country: CO (occurrence: CO)
  Receive Date: 20130502
  Receipt Date: 20130502
  Transmission Date: 20140414
  Serious: Yes (Other)
  Sender: FDA-Public Use
  Company Number: CO-AMGEN-COLSP2013030145

PATIENT
  Age: 67 Year
  Sex: Female

DRUGS (4)
  1. ENBREL [Suspect]
     Indication: RHEUMATOID ARTHRITIS
     Dosage: 50 MG, WEEKLY
     Route: 058
     Dates: start: 2012, end: 20130408
  2. CALTRATE WITH VITAMIN D [Suspect]
     Indication: OSTEOPOROSIS
     Dosage: 1 TABLET, 1X/DAY
     Route: 048
     Dates: start: 1998
  3. PREDNISOLON                        /00016201/ [Concomitant]
     Indication: RHEUMATOID ARTHRITIS
     Dosage: UNK
     Route: 065
  4. ACETAMINOPHEN W/CODEINE [Concomitant]
     Indication: RHEUMATOID ARTHRITIS
     Dosage: UNK
     Route: 065

REACTIONS (2)
  - Renal failure [Not Recovered/Not Resolved]
  - Hallucination [Recovered/Resolved]
